FAERS Safety Report 18427233 (Version 1)
Quarter: 2020Q4

REPORT INFORMATION
  Report Type: Spontaneous
  Country: US (occurrence: US)
  Receive Date: 20201026
  Receipt Date: 20201026
  Transmission Date: 20210114
  Serious: No
  Sender: FDA-Public Use
  Company Number: US-MYLANLABS-2020M1088367

PATIENT
  Age: 83 Year
  Sex: Female
  Weight: 43 kg

DRUGS (1)
  1. BENAZEPRIL [Suspect]
     Active Substance: BENAZEPRIL HYDROCHLORIDE
     Indication: HYPERTENSION
     Dosage: 20 MILLIGRAM, QD
     Route: 048

REACTIONS (4)
  - Dizziness [Recovered/Resolved]
  - Feeling abnormal [Unknown]
  - Inappropriate schedule of product administration [Unknown]
  - Hypertension [Recovered/Resolved]
